FAERS Safety Report 22814922 (Version 4)
Quarter: 2023Q4

REPORT INFORMATION
  Report Type: Report from Study
  Country: GR (occurrence: GR)
  Receive Date: 20230811
  Receipt Date: 20231101
  Transmission Date: 20240110
  Serious: Yes (Hospitalization)
  Sender: FDA-Public Use
  Company Number: GR-ABBVIE-5363153

PATIENT
  Age: 80 Year
  Sex: Male

DRUGS (7)
  1. CARBIDOPA\LEVODOPA [Suspect]
     Active Substance: CARBIDOPA\LEVODOPA
     Indication: Parkinson^s disease
     Dosage: MORNING DOSE: 15.0ML; CONTINUOUS RATE: 4.7ML/H; EXTRA DOSE: 2.2ML
     Route: 050
     Dates: start: 20181204
  2. CARBIDOPA\LEVODOPA [Suspect]
     Active Substance: CARBIDOPA\LEVODOPA
     Dosage: MORNING DOSE: 15.0ML; CONTINUOUS RATE: 4.7ML/H; EXTRA DOSE: 2.2ML
     Route: 050
  3. CARBIDOPA\LEVODOPA [Suspect]
     Active Substance: CARBIDOPA\LEVODOPA
     Dosage: MORNING DOSE: 15.0ML; CONTINUOUS RATE: 4.7ML/H; EXTRA DOSE: 2.2ML
     Route: 050
  4. NEURONTIN [Concomitant]
     Active Substance: GABAPENTIN
     Indication: Burning sensation
     Route: 048
  5. ARIXTRA [Concomitant]
     Active Substance: FONDAPARINUX SODIUM
     Indication: Product used for unknown indication
     Dosage: UNIT DOSE: 2.5MG/0.5MG?FREQUENCY TEXT: 1X1 (IN THE MORNING)?ROUTE OF ADMINISTRATION: INJECTION
  6. 4 [Concomitant]
     Indication: Hypothyroidism
     Dosage: FREQUENCY TEXT: 1X1 (IN THE MORNING)
     Route: 048
  7. ZOLOFT [Concomitant]
     Active Substance: SERTRALINE HYDROCHLORIDE
     Indication: Depression
     Dosage: FREQUENCY TEXT: 1X1 (IN THE MORNING)
     Route: 048

REACTIONS (3)
  - Pneumopericardium [Unknown]
  - Diverticulum intestinal [Unknown]
  - Pneumoperitoneum [Unknown]

NARRATIVE: CASE EVENT DATE: 20230809
